FAERS Safety Report 7340343-5 (Version None)
Quarter: 2011Q1

REPORT INFORMATION
  Report Type: 
  Country: None (occurrence: None)
  Receive Date: 20110309
  Receipt Date: 20110228
  Transmission Date: 20110831
  Serious: No
  Sender: FDA-Public Use
  Company Number: US-BIOGENIDEC-2011BI007597

PATIENT
  Age: 37 Year
  Sex: Male

DRUGS (1)
  1. TYSABRI [Suspect]
     Indication: MULTIPLE SCLEROSIS
     Route: 042
     Dates: start: 20071207, end: 20101207

REACTIONS (14)
  - BODY TEMPERATURE INCREASED [None]
  - FEELING OF BODY TEMPERATURE CHANGE [None]
  - HALLUCINATION [None]
  - ANXIETY [None]
  - WEIGHT INCREASED [None]
  - LOSS OF CONSCIOUSNESS [None]
  - BRONCHITIS [None]
  - TOOTH INFECTION [None]
  - CONFUSIONAL STATE [None]
  - WHEEZING [None]
  - ASTHENIA [None]
  - FATIGUE [None]
  - HYPERHIDROSIS [None]
  - HEADACHE [None]
